FAERS Safety Report 15394036 (Version 4)
Quarter: 2020Q3

REPORT INFORMATION
  Report Type: Spontaneous
  Country: US (occurrence: US)
  Receive Date: 20180917
  Receipt Date: 20200831
  Transmission Date: 20201102
  Serious: Yes (Other)
  Sender: FDA-Public Use
  Company Number: US-GLAXOSMITHKLINE-US2018165539

PATIENT
  Sex: Female

DRUGS (8)
  1. ATORVASTATIN [Interacting]
     Active Substance: ATORVASTATIN
     Indication: PRODUCT USED FOR UNKNOWN INDICATION
     Dosage: UNK
  2. LAMICTAL XR [Interacting]
     Active Substance: LAMOTRIGINE
     Indication: EPILEPSY
     Dosage: UNK
     Route: 048
  3. LAMICTAL [Suspect]
     Active Substance: LAMOTRIGINE
     Indication: EPILEPSY
     Dosage: UNK
  4. ZONEGRAN [Suspect]
     Active Substance: ZONISAMIDE
     Indication: PRODUCT USED FOR UNKNOWN INDICATION
     Dosage: UNK
  5. LAMOTRIGINE. [Suspect]
     Active Substance: LAMOTRIGINE
     Indication: EPILEPSY
     Dosage: UNK
  6. HYDROCHLOROTHIAZIDE + TRIAMTERENE [Suspect]
     Active Substance: HYDROCHLOROTHIAZIDE\TRIAMTERENE
     Indication: PRODUCT USED FOR UNKNOWN INDICATION
     Dosage: UNK
     Route: 065
  7. DEPAKOTE [Suspect]
     Active Substance: DIVALPROEX SODIUM
     Indication: PRODUCT USED FOR UNKNOWN INDICATION
     Dosage: UNK
  8. AMLODIPINE [Interacting]
     Active Substance: AMLODIPINE BESYLATE
     Indication: PRODUCT USED FOR UNKNOWN INDICATION
     Dosage: UNK

REACTIONS (16)
  - Balance disorder [Unknown]
  - Wrong technique in product usage process [Unknown]
  - Seizure [Unknown]
  - Partial seizures [Unknown]
  - Fall [Unknown]
  - Cardiac disorder [Unknown]
  - Lung disorder [Unknown]
  - Drug interaction [Unknown]
  - Adverse drug reaction [Unknown]
  - Diplopia [Unknown]
  - Product substitution issue [Unknown]
  - Delusional disorder, persecutory type [Unknown]
  - Overdose [Unknown]
  - Mental disorder [Unknown]
  - Anticonvulsant drug level decreased [Unknown]
  - Paranoia [Unknown]

NARRATIVE: CASE EVENT DATE: 2018
